FAERS Safety Report 17238565 (Version 2)
Quarter: 2020Q1

REPORT INFORMATION
  Report Type: Spontaneous
  Country: JP (occurrence: JP)
  Receive Date: 20200106
  Receipt Date: 20200110
  Transmission Date: 20200409
  Serious: Yes (Hospitalization, Other)
  Sender: FDA-Public Use
  Company Number: NVSJ2019JP005273

PATIENT
  Age: 80 Year
  Sex: Male

DRUGS (2)
  1. AFINITOR [Suspect]
     Active Substance: EVEROLIMUS
     Indication: PANCREATIC NEUROENDOCRINE TUMOUR
     Dosage: UNKNOWN
     Route: 048
  2. GLIMEPIRIDE. [Concomitant]
     Active Substance: GLIMEPIRIDE
     Indication: TYPE 2 DIABETES MELLITUS
     Dosage: UNKNOWN
     Route: 048

REACTIONS (3)
  - Altered state of consciousness [Unknown]
  - Hypoglycaemia [Recovered/Resolved]
  - Metastases to rectum [Unknown]
